FAERS Safety Report 11641667 (Version 1)
Quarter: 2015Q4

REPORT INFORMATION
  Report Type: Spontaneous
  Country: JP (occurrence: JP)
  Receive Date: 20151019
  Receipt Date: 20151019
  Transmission Date: 20160304
  Serious: Yes (Hospitalization, Other)
  Sender: FDA-Public Use
  Company Number: JP-PFIZER INC-2015346243

PATIENT
  Age: 75 Year
  Sex: Female

DRUGS (4)
  1. MYONAL [Concomitant]
     Active Substance: EPERISONE HYDROCHLORIDE
     Dosage: UNK
     Route: 048
  2. GLORIAMIN [Concomitant]
     Dosage: UNK
     Route: 048
  3. PEON [Concomitant]
     Active Substance: ZALTOPROFEN
     Dosage: UNK
     Route: 048
  4. LYRICA [Suspect]
     Active Substance: PREGABALIN
     Indication: NECK PAIN
     Dosage: 25 MG, DAILY
     Route: 048
     Dates: start: 20151004, end: 20151004

REACTIONS (3)
  - Generalised erythema [Unknown]
  - Anaphylactoid reaction [Recovered/Resolved]
  - Blood pressure increased [Unknown]

NARRATIVE: CASE EVENT DATE: 20151004
